FAERS Safety Report 24696260 (Version 1)
Quarter: 2024Q4

REPORT INFORMATION
  Report Type: Other
  Country: GB (occurrence: GB)
  Receive Date: 20241204
  Receipt Date: 20241204
  Transmission Date: 20250115
  Serious: Yes (Other)
  Sender: APPCO PHARMA LLC
  Company Number: GB-Appco Pharma LLC-2166473

PATIENT

DRUGS (1)
  1. SILDENAFIL [Suspect]
     Active Substance: SILDENAFIL
     Indication: Neonatal hypoxia

REACTIONS (1)
  - Drug ineffective [Unknown]
